FAERS Safety Report 23263678 (Version 1)
Quarter: 2023Q4

REPORT INFORMATION
  Report Type: Spontaneous
  Country: US (occurrence: None)
  Receive Date: 20231205
  Receipt Date: 20231205
  Transmission Date: 20240109
  Serious: Yes (Hospitalization)
  Sender: FDA-Public Use
  Company Number: None

PATIENT
  Age: 56 Year
  Sex: Male
  Weight: 179.0 kg

DRUGS (1)
  1. PERFLUTREN [Suspect]
     Active Substance: PERFLUTREN
     Dates: start: 20231003, end: 20231003

REACTIONS (3)
  - Chest pain [None]
  - Back pain [None]
  - Contrast media reaction [None]

NARRATIVE: CASE EVENT DATE: 20231003
